FAERS Safety Report 15186601 (Version 1)
Quarter: 2018Q3

REPORT INFORMATION
  Report Type: Report from Study
  Country: US (occurrence: US)
  Receive Date: 20180723
  Receipt Date: 20180723
  Transmission Date: 20181010
  Serious: No
  Sender: FDA-Public Use
  Company Number: US-EXELIXIS-CABO-18012385

PATIENT
  Sex: Female
  Weight: 62.59 kg

DRUGS (13)
  1. PROCHLORPERAZINE MALEATE. [Concomitant]
     Active Substance: PROCHLORPERAZINE MALEATE
  2. NORETHINDRONE ACETATE. [Concomitant]
     Active Substance: NORETHINDRONE ACETATE
  3. PREDNISONE. [Concomitant]
     Active Substance: PREDNISONE
  4. SUNITINIB MALATE. [Concomitant]
     Active Substance: SUNITINIB MALATE
  5. CABOMETYX [Suspect]
     Active Substance: CABOZANTINIB S-MALATE
     Indication: RENAL CANCER
     Dosage: 40 MG, QD
     Route: 048
  6. LORAZEPAM. [Concomitant]
     Active Substance: LORAZEPAM
  7. ALLOPURINOL. [Concomitant]
     Active Substance: ALLOPURINOL
  8. ALBUTEROL. [Concomitant]
     Active Substance: ALBUTEROL
  9. ETHINYLESTRADIOL [Concomitant]
     Active Substance: ETHINYL ESTRADIOL
  10. DICLOFENAC SODIUM. [Concomitant]
     Active Substance: DICLOFENAC SODIUM
  11. MORPHINE SULFATE. [Concomitant]
     Active Substance: MORPHINE SULFATE
  12. TORSEMIDE. [Concomitant]
     Active Substance: TORSEMIDE
  13. FERROUS FUMARATE [Concomitant]
     Active Substance: FERROUS FUMARATE

REACTIONS (1)
  - Toxicity to various agents [Unknown]
